APPROVED DRUG PRODUCT: SANDIMMUNE
Active Ingredient: CYCLOSPORINE
Strength: 100MG
Dosage Form/Route: CAPSULE;ORAL
Application: N050625 | Product #002 | TE Code: AB2
Applicant: NOVARTIS PHARMACEUTICALS CORP
Approved: Mar 2, 1990 | RLD: Yes | RS: Yes | Type: RX